FAERS Safety Report 7626186-3 (Version None)
Quarter: 2011Q3

REPORT INFORMATION
  Report Type: 
  Country: None (occurrence: None)
  Receive Date: 20110721
  Receipt Date: 20110711
  Transmission Date: 20111222
  Serious: Yes (Hospitalization)
  Sender: FDA-Public Use
  Company Number: PHHY2011NL49987

PATIENT
  Sex: Male

DRUGS (16)
  1. PREDNISONE [Concomitant]
     Dosage: 5 MG, BID
  2. METOPROLOL TARTRATE [Concomitant]
     Dosage: 50 MG, QD
  3. DICLOFENAC [Concomitant]
     Dosage: 50 MG, BID
  4. OXYCODONE HCL [Concomitant]
     Dosage: 10 MG, PRN (1-4)
  5. ZOMETA [Suspect]
     Indication: PROSTATE CANCER METASTATIC
     Dosage: 4/5 MG/ML, ONCE PER 28 DAYS
     Route: 042
     Dates: start: 20100319
  6. FENTANYL [Concomitant]
     Dosage: 25 UKN, UNK
  7. ZOLADEX [Concomitant]
     Dosage: UNK UKN, UNK
  8. TAMSULOSIN HCL [Concomitant]
     Dosage: UNK UKN, UNK
  9. MOVICOLON [Concomitant]
     Dosage: UNK UKN, PRN
  10. ESOMEPRAZOLE MAGNESIUM [Concomitant]
     Dosage: 20 MG, QD
  11. PCM [Concomitant]
     Dosage: 500 MG, 8 TIMES
  12. BUDESONIDE [Concomitant]
     Dosage: UNK UKN, UNK
  13. AMLODIPINE [Concomitant]
     Dosage: 5 MG, QD
  14. CHEMOTHERAPEUTICS NOS [Concomitant]
     Dosage: UNK UKN, UNK
  15. ZOMETA [Suspect]
     Dosage: 4/5 MG/ML, ONCE PER 28 DAYS
     Route: 042
     Dates: start: 20110509
  16. OXAZEPAM [Concomitant]
     Dosage: 10 MG, QD

REACTIONS (2)
  - DIARRHOEA [None]
  - GENERAL PHYSICAL HEALTH DETERIORATION [None]
